FAERS Safety Report 4819590-X (Version None)
Quarter: 2005Q4

REPORT INFORMATION
  Report Type: 
  Country: None (occurrence: None)
  Receive Date: 20051102
  Receipt Date: 20051102
  Transmission Date: 20060501
  Serious: Yes (Death, Life-Threatening, Hospitalization)
  Sender: FDA-Public Use
  Company Number: None

PATIENT
  Age: 81 Year
  Sex: Female
  Weight: 104.3273 kg

DRUGS (1)
  1. ALLOPURINOL [Suspect]
     Indication: ARTHRITIS
     Dosage: 100 MG TWICE/ DAY PO
     Route: 048
     Dates: start: 20050304

REACTIONS (4)
  - BLISTER [None]
  - PYREXIA [None]
  - RASH [None]
  - SWELLING FACE [None]
